FAERS Safety Report 11069788 (Version 3)
Quarter: 2015Q2

REPORT INFORMATION
  Report Type: Spontaneous
  Country: BR (occurrence: BR)
  Receive Date: 20150427
  Receipt Date: 20150520
  Transmission Date: 20150821
  Serious: Yes (Death, Hospitalization)
  Sender: FDA-Public Use
  Company Number: BR-BIOMARINAP-BR-2015-106090

PATIENT
  Sex: Male
  Weight: 20 kg

DRUGS (1)
  1. NAGLAZYME [Suspect]
     Active Substance: GALSULFASE
     Indication: MUCOPOLYSACCHARIDOSIS VI
     Dosage: 15 MG, QW
     Route: 042
     Dates: start: 20080416

REACTIONS (10)
  - Delirium [Unknown]
  - Death [Fatal]
  - Pulmonary hypertension [Unknown]
  - Hernia [Unknown]
  - Burning sensation [Unknown]
  - Pain [Unknown]
  - Lung disorder [Not Recovered/Not Resolved]
  - Pericardial disease [Unknown]
  - Hypotension [Unknown]
  - Abdominal pain [Unknown]
